FAERS Safety Report 8323805-3 (Version None)
Quarter: 2012Q2

REPORT INFORMATION
  Report Type: 
  Country: None (occurrence: None)
  Receive Date: 20120501
  Receipt Date: 20120417
  Transmission Date: 20120825
  Serious: Yes (Hospitalization)
  Sender: FDA-Public Use
  Company Number: CN-NOVOPROD-349222

PATIENT
  Age: 51 Year
  Sex: Male
  Weight: 82.6 kg

DRUGS (2)
  1. LIRAGLUTIDE FLEXPEN [Suspect]
     Indication: TYPE 2 DIABETES MELLITUS
     Dosage: 1.8 MG, QD
     Route: 058
     Dates: start: 20120307, end: 20120405
  2. LIRAGLUTIDE FLEXPEN [Suspect]
     Dosage: 1.2 MG, QD
     Route: 058
     Dates: start: 20120406

REACTIONS (1)
  - CARDIAC FAILURE [None]
